FAERS Safety Report 17419093 (Version 1)
Quarter: 2020Q1

REPORT INFORMATION
  Report Type: Spontaneous
  Country: US (occurrence: US)
  Receive Date: 20200130
  Receipt Date: 20200130
  Transmission Date: 20200409
  Serious: Yes (Hospitalization)
  Sender: FDA-Public Use
  Company Number: None

PATIENT
  Age: 71 Year
  Sex: Male

DRUGS (6)
  1. WARFARIN (WARFARIN NA (EXELAN) 2MG TAB [Suspect]
     Active Substance: WARFARIN
     Indication: TRANSIENT ISCHAEMIC ATTACK
  2. WARFARIN (WARFARIN NA (EXELAN) 2MG TAB [Suspect]
     Active Substance: WARFARIN
  3. WARFARIN (WARFARIN NA (EXELAN) 2MG TAB [Suspect]
     Active Substance: WARFARIN
     Indication: ATRIAL FIBRILLATION
     Dates: start: 20121022
  4. WARFARIN (WARFARIN NA (EXELAN) 2MG TAB [Suspect]
     Active Substance: WARFARIN
     Indication: PULMONARY EMBOLISM
  5. WARFARIN (WARFARIN NA (EXELAN) 2MG TAB [Suspect]
     Active Substance: WARFARIN
     Indication: CEREBROVASCULAR ACCIDENT
  6. WARFARIN (WARFARIN NA (EXELAN) 2MG TAB [Suspect]
     Active Substance: WARFARIN
     Indication: DEEP VEIN THROMBOSIS

REACTIONS (3)
  - Gastric haemorrhage [None]
  - Abdominal wall haematoma [None]
  - Gastrointestinal haemorrhage [None]

NARRATIVE: CASE EVENT DATE: 20191011
